FAERS Safety Report 7155095-1 (Version None)
Quarter: 2010Q4

REPORT INFORMATION
  Report Type: 
  Country: None (occurrence: None)
  Receive Date: 20101214
  Receipt Date: 20100128
  Transmission Date: 20110411
  Serious: Yes (Other)
  Sender: FDA-Public Use
  Company Number: US-AMGEN-QUU352962

PATIENT

DRUGS (6)
  1. ENBREL [Suspect]
     Indication: RHEUMATOID ARTHRITIS
     Dosage: 50 MG, QWK
     Route: 058
     Dates: start: 20090119, end: 20091103
  2. METHOTREXATE [Suspect]
     Dosage: 15 MG, QWK
     Route: 048
  3. CELECOXIB [Concomitant]
     Dosage: 200 MG, QD
  4. DOXYCYCLINE [Concomitant]
     Dosage: 50 MG, QD
  5. POTASSIUM CHLORIDE [Concomitant]
     Dosage: 20 MEQ, 3 TIMES/WK
  6. CANDESARTAN CILEXETIL [Concomitant]
     Dosage: 16 MG, UNK

REACTIONS (18)
  - ABDOMINAL DISCOMFORT [None]
  - ARTHRALGIA [None]
  - BACK PAIN [None]
  - BREAST CANCER [None]
  - DYSPEPSIA [None]
  - EPICONDYLITIS [None]
  - FATIGUE [None]
  - GASTRITIS [None]
  - INSOMNIA [None]
  - JOINT SWELLING [None]
  - LIVER FUNCTION TEST ABNORMAL [None]
  - MUSCULOSKELETAL PAIN [None]
  - NAUSEA [None]
  - NOCTURIA [None]
  - POLLAKIURIA [None]
  - RHEUMATOID ARTHRITIS [None]
  - SYNOVITIS [None]
  - TENOSYNOVITIS [None]
